FAERS Safety Report 20047087 (Version 1)
Quarter: 2021Q4

REPORT INFORMATION
  Report Type: Spontaneous
  Country: US (occurrence: None)
  Receive Date: 20211109
  Receipt Date: 20211109
  Transmission Date: 20220303
  Serious: No
  Sender: FDA-Public Use
  Company Number: None

PATIENT
  Age: 32 Year
  Sex: Female

DRUGS (1)
  1. HUMIRA [Suspect]
     Active Substance: ADALIMUMAB
     Indication: Hidradenitis
     Dosage: FREQUENCY : WEEKLY;?
     Route: 058
     Dates: start: 20210205

REACTIONS (4)
  - Condition aggravated [None]
  - Therapeutic product effect decreased [None]
  - Therapy interrupted [None]
  - Psoriasis [None]

NARRATIVE: CASE EVENT DATE: 20211024
